FAERS Safety Report 9632354 (Version 2)
Quarter: 2013Q4

REPORT INFORMATION
  Report Type: Spontaneous
  Country: JP (occurrence: JP)
  Receive Date: 20131018
  Receipt Date: 20131030
  Transmission Date: 20140711
  Serious: Yes (Hospitalization)
  Sender: FDA-Public Use
  Company Number: JP-UCBSA-100270

PATIENT
  Age: 66 Year
  Sex: Female

DRUGS (6)
  1. CIMZIA [Suspect]
     Indication: RHEUMATOID ARTHRITIS
     Dosage: 200MG SYRINGE (400 MG PER FOUR WEEKS)
     Route: 058
     Dates: start: 20130517, end: 20130712
  2. PROGRAF [Suspect]
     Indication: RHEUMATOID ARTHRITIS
     Dosage: DAILY DOSE: 1MG
     Route: 048
     Dates: start: 20120413
  3. CLINORIL [Concomitant]
     Dosage: DAILY DOSE: : 200MG
     Route: 048
  4. PREDNISOLONE [Concomitant]
     Dosage: DAILY DOSE:  6 MG
     Route: 048
  5. TAKEPRON [Concomitant]
     Dosage: DAILY DOSE: : 15 MG
     Route: 048
  6. AZULFIDINE-EN [Concomitant]
     Dosage: DAILY DOSE: 1000MG
     Route: 048

REACTIONS (1)
  - Pneumonia [Recovered/Resolved]
